FAERS Safety Report 5281903-5 (Version None)
Quarter: 2007Q1

REPORT INFORMATION
  Report Type: 
  Country: None (occurrence: None)
  Receive Date: 20070330
  Receipt Date: 20070320
  Transmission Date: 20070707
  Serious: Yes (Death)
  Sender: FDA-Public Use
  Company Number: US-JNJFOC-20070305127

PATIENT
  Sex: Male
  Weight: 149.69 kg

DRUGS (4)
  1. TOPAMAX [Suspect]
     Indication: PAIN
     Dosage: 25 MG TABLET TO 100 TABLET ORAL INITIATED 2005 AND DISCONTINUED 12-2006.
     Route: 048
  2. PREVACID [Concomitant]
     Indication: GASTROOESOPHAGEAL REFLUX DISEASE
  3. PROTONIX [Concomitant]
     Indication: GASTROOESOPHAGEAL REFLUX DISEASE
  4. LISINOPRIL [Concomitant]
     Indication: HYPERTENSION

REACTIONS (3)
  - COUGH [None]
  - LUNG NEOPLASM MALIGNANT [None]
  - WEIGHT DECREASED [None]
